FAERS Safety Report 21600716 (Version 3)
Quarter: 2023Q1

REPORT INFORMATION
  Report Type: Report from Study
  Country: US (occurrence: US)
  Receive Date: 20221116
  Receipt Date: 20230123
  Transmission Date: 20230418
  Serious: No
  Sender: FDA-Public Use
  Company Number: US-ABBVIE-22K-163-4375074-00

PATIENT
  Sex: Female

DRUGS (1)
  1. IMBRUVICA [Suspect]
     Active Substance: IBRUTINIB
     Indication: Waldenstrom^s macroglobulinaemia
     Dosage: FORM STRENGTH: 420 MILLIGRAM
     Route: 048

REACTIONS (19)
  - Injury [Unknown]
  - Musculoskeletal stiffness [Recovering/Resolving]
  - Sensitive skin [Unknown]
  - Pain [Not Recovered/Not Resolved]
  - Dyspepsia [Not Recovered/Not Resolved]
  - Muscle spasms [Not Recovered/Not Resolved]
  - Myalgia [Recovering/Resolving]
  - Paraesthesia [Not Recovered/Not Resolved]
  - Arthralgia [Recovering/Resolving]
  - Musculoskeletal pain [Recovering/Resolving]
  - Swelling [Recovering/Resolving]
  - Fatigue [Recovering/Resolving]
  - Crohn^s disease [Recovering/Resolving]
  - Dry skin [Unknown]
  - Onychoclasis [Not Recovered/Not Resolved]
  - Muscular weakness [Not Recovered/Not Resolved]
  - Pain [Not Recovered/Not Resolved]
  - Radiculitis brachial [Unknown]
  - Irritability [Unknown]
